FAERS Safety Report 7047785-6 (Version None)
Quarter: 2010Q4

REPORT INFORMATION
  Report Type: 
  Country: None (occurrence: None)
  Receive Date: 20101015
  Receipt Date: 20101004
  Transmission Date: 20110411
  Serious: Yes (Hospitalization, Other)
  Sender: FDA-Public Use
  Company Number: US-PFIZER INC-2010126141

PATIENT
  Sex: Male

DRUGS (1)
  1. GEODON [Suspect]
     Indication: BIPOLAR DISORDER
     Dosage: 40 MG, 2X/DAY

REACTIONS (3)
  - BIPOLAR DISORDER [None]
  - MUSCULOSKELETAL STIFFNESS [None]
  - SWOLLEN TONGUE [None]
